FAERS Safety Report 5715578-5 (Version None)
Quarter: 2008Q2

REPORT INFORMATION
  Report Type: 
  Country: None (occurrence: None)
  Receive Date: 20080424
  Receipt Date: 20080415
  Transmission Date: 20081010
  Serious: Yes (Other)
  Sender: FDA-Public Use
  Company Number: US-BAYER-200819983NA

PATIENT
  Age: 46 Year
  Sex: Female

DRUGS (2)
  1. CLIMARA [Suspect]
     Indication: DRUG USE FOR UNKNOWN INDICATION
     Route: 062
     Dates: start: 19950101
  2. CLIMARA [Suspect]
     Route: 062

REACTIONS (2)
  - PLATELET COUNT INCREASED [None]
  - THROMBOCYTHAEMIA [None]
